FAERS Safety Report 5827195-7 (Version None)
Quarter: 2008Q3

REPORT INFORMATION
  Report Type: 
  Country: None (occurrence: None)
  Receive Date: 20080730
  Receipt Date: 20080723
  Transmission Date: 20090109
  Serious: Yes (Death, Other)
  Sender: FDA-Public Use
  Company Number: US-BAXTER-2008BH007791

PATIENT
  Age: 46 Year
  Sex: Male

DRUGS (4)
  1. ATIVAN [Suspect]
     Indication: DRUG USE FOR UNKNOWN INDICATION
     Route: 042
     Dates: start: 20080415, end: 20080415
  2. ATIVAN [Suspect]
     Route: 042
     Dates: start: 20080415, end: 20080415
  3. MORPHINE [Suspect]
     Indication: DRUG USE FOR UNKNOWN INDICATION
     Route: 042
     Dates: start: 20080415, end: 20080415
  4. GEODON [Suspect]
     Indication: RESTLESSNESS
     Route: 042
     Dates: start: 20080415, end: 20080415

REACTIONS (5)
  - ATRIAL FIBRILLATION [None]
  - ATRIAL FLUTTER [None]
  - DEATH [None]
  - HEART RATE DECREASED [None]
  - HYPOTENSION [None]
